FAERS Safety Report 21977760 (Version 1)
Quarter: 2023Q1

REPORT INFORMATION
  Report Type: Spontaneous
  Country: US (occurrence: US)
  Receive Date: 20230210
  Receipt Date: 20230210
  Transmission Date: 20230417
  Serious: No
  Sender: FDA-Public Use
  Company Number: US-UNITED THERAPEUTICS-UNT-2023-003395

PATIENT
  Sex: Female
  Weight: 98.413 kg

DRUGS (3)
  1. REMODULIN [Suspect]
     Active Substance: TREPROSTINIL
     Indication: Pulmonary arterial hypertension
     Dosage: 0.060 ?G/KG, (SELF-FILLED REMUNITY; FILL CASSETTE WITH 2.5 ML AT PUMP RATE OF 28 MCL/HR), CONTINUING
     Route: 058
  2. SILDENAFIL CITRATE [Concomitant]
     Active Substance: SILDENAFIL CITRATE
     Indication: Product used for unknown indication
     Dosage: UNK
     Route: 065
  3. LETAIRIS [Concomitant]
     Active Substance: AMBRISENTAN
     Indication: Product used for unknown indication
     Route: 065

REACTIONS (8)
  - Device failure [Unknown]
  - Device failure [Unknown]
  - Device leakage [Unknown]
  - Device failure [Unknown]
  - Device wireless communication issue [Recovered/Resolved]
  - Device malfunction [Unknown]
  - Device failure [Unknown]
  - Headache [Unknown]
